FAERS Safety Report 24151326 (Version 1)
Quarter: 2024Q3

REPORT INFORMATION
  Report Type: Spontaneous
  Country: US (occurrence: US)
  Receive Date: 20240730
  Receipt Date: 20240730
  Transmission Date: 20241016
  Serious: No
  Sender: GLENMARK
  Company Number: US-GLENMARK PHARMACEUTICALS-2024GMK090431

PATIENT

DRUGS (1)
  1. MUPIROCIN [Suspect]
     Active Substance: MUPIROCIN
     Indication: Product used for unknown indication
     Dosage: UNK (APPLY IN THE NOSE, INTRANASAL USE)
     Route: 045

REACTIONS (4)
  - Epistaxis [Unknown]
  - Swollen tongue [Unknown]
  - Lip swelling [Unknown]
  - Product use issue [Unknown]
